FAERS Safety Report 5952658-3 (Version None)
Quarter: 2008Q4

REPORT INFORMATION
  Report Type: 
  Country: None (occurrence: None)
  Receive Date: 20081029
  Receipt Date: 20070926
  Transmission Date: 20090506
  Serious: Yes (Hospitalization)
  Sender: FDA-Public Use
  Company Number: A0720848A

PATIENT
  Age: 74 Year
  Sex: Female
  Weight: 64.2747 kg

DRUGS (5)
  1. RYTHMOL SR [Suspect]
     Indication: ATRIAL FIBRILLATION
     Dosage: 450 MG / PER DAY / ORAL
     Route: 048
     Dates: start: 20070501, end: 20070912
  2. RYTHMOL SR [Suspect]
     Indication: ATRIAL FIBRILLATION
     Dosage: 675 MG / PER DAY / ORAL
     Route: 048
     Dates: start: 20070912
  3. WARFARIN SODIUM [Concomitant]
  4. DILTIAZEM HYDROCHLORIDE [Concomitant]
  5. DONEPEZIL HC1 [Concomitant]

REACTIONS (2)
  - ATRIAL FIBRILLATION [None]
  - THERAPEUTIC RESPONSE DECREASED [None]
